FAERS Safety Report 11488656 (Version 1)
Quarter: 2015Q3

REPORT INFORMATION
  Report Type: Spontaneous
  Country: US (occurrence: US)
  Receive Date: 20150910
  Receipt Date: 20150910
  Transmission Date: 20151125
  Serious: No
  Sender: FDA-Public Use
  Company Number: US-ROCHE-1521543

PATIENT
  Age: 34 Year
  Sex: Female

DRUGS (30)
  1. HYDRALAZINE [Concomitant]
     Active Substance: HYDRALAZINE HYDROCHLORIDE
     Dosage: 90
     Route: 065
     Dates: start: 20141209
  2. ASPIRIN. [Concomitant]
     Active Substance: ASPIRIN
     Dosage: 100?LOW DOSE
     Route: 065
     Dates: start: 20141126
  3. CYTRA-2 [Concomitant]
     Active Substance: CITRIC ACID MONOHYDRATE\TRISODIUM CITRATE DIHYDRATE
     Dosage: 1800
     Route: 065
     Dates: start: 20141014
  4. PEGASYS [Suspect]
     Active Substance: PEGINTERFERON ALFA-2A
     Indication: HEPATITIS
     Dosage: PEN
     Route: 058
     Dates: start: 20141217
  5. FUROSEMIDE. [Concomitant]
     Active Substance: FUROSEMIDE
     Dosage: 90
     Route: 065
     Dates: start: 20141126
  6. MAGNESIUM OXIDE. [Concomitant]
     Active Substance: MAGNESIUM OXIDE
     Dosage: 60
     Route: 065
     Dates: start: 20140901
  7. LANTUS [Concomitant]
     Active Substance: INSULIN GLARGINE
     Dosage: 10
     Route: 065
     Dates: start: 20140311
  8. TACROLIMUS. [Concomitant]
     Active Substance: TACROLIMUS
     Dosage: 90
     Route: 065
     Dates: start: 20141014
  9. FUROSEMIDE. [Concomitant]
     Active Substance: FUROSEMIDE
     Dosage: 90
     Route: 065
     Dates: start: 20141013
  10. AMOXCLAV [Concomitant]
     Dosage: 90
     Route: 065
     Dates: start: 20141218
  11. RIBAVIRIN. [Concomitant]
     Active Substance: RIBAVIRIN
     Dosage: 30
     Route: 065
     Dates: start: 20141126
  12. MUPIROCIN. [Concomitant]
     Active Substance: MUPIROCIN
     Dosage: 30GM?30
     Route: 065
     Dates: start: 20141126
  13. NOVOLOG [Concomitant]
     Active Substance: INSULIN ASPART
     Route: 065
     Dates: start: 20141014
  14. METOPROLOL SUCCINATE. [Concomitant]
     Active Substance: METOPROLOL SUCCINATE
     Dosage: 90
     Route: 065
     Dates: start: 20141129
  15. NOVOLOG [Concomitant]
     Active Substance: INSULIN ASPART
     Dosage: 10?U-100 INSULIN
     Route: 065
     Dates: start: 20140926
  16. METOPROLOL SUCCINATE. [Concomitant]
     Active Substance: METOPROLOL SUCCINATE
     Dosage: 90
     Route: 065
     Dates: start: 20141202
  17. MUPIROCIN. [Concomitant]
     Active Substance: MUPIROCIN
     Dosage: 30GM?30
     Route: 065
     Dates: start: 20141022
  18. OLYSIO [Concomitant]
     Active Substance: SIMEPREVIR
     Dosage: 30
     Route: 065
     Dates: start: 20141202
  19. LANTUS [Concomitant]
     Active Substance: INSULIN GLARGINE
     Dosage: 10
     Route: 065
     Dates: start: 20141126
  20. AMLODIPINE BESILATE [Concomitant]
     Active Substance: AMLODIPINE BESYLATE
     Dosage: 90
     Route: 065
     Dates: start: 20141215
  21. AMOXCLAV [Concomitant]
     Dosage: 90
     Route: 065
     Dates: start: 20141216
  22. MAGNESIUM OXIDE. [Concomitant]
     Active Substance: MAGNESIUM OXIDE
     Dosage: 60
     Route: 065
     Dates: start: 20141126
  23. HYDRALAZINE [Concomitant]
     Active Substance: HYDRALAZINE HYDROCHLORIDE
     Dosage: 90
     Route: 065
     Dates: start: 20141211
  24. RIBAVIRIN. [Concomitant]
     Active Substance: RIBAVIRIN
     Dosage: 30
     Route: 065
     Dates: start: 20141112
  25. OLYSIO [Concomitant]
     Active Substance: SIMEPREVIR
     Dosage: 30
     Route: 065
     Dates: start: 20141007
  26. CALCIUM ACETATE. [Concomitant]
     Active Substance: CALCIUM ACETATE
     Dosage: 180
     Route: 065
     Dates: start: 20150109
  27. PREDNISONE. [Concomitant]
     Active Substance: PREDNISONE
     Dosage: 90
     Route: 065
     Dates: start: 20141014
  28. AMLODIPINE BESILATE [Concomitant]
     Active Substance: AMLODIPINE BESYLATE
     Dosage: 90
     Route: 065
     Dates: start: 20141216
  29. ASPIRIN. [Concomitant]
     Active Substance: ASPIRIN
     Dosage: 100?LOW DOSE
     Route: 065
     Dates: start: 20141118
  30. CALCIUM ACETATE. [Concomitant]
     Active Substance: CALCIUM ACETATE
     Dosage: 180
     Route: 065
     Dates: start: 20140717

REACTIONS (1)
  - Rash [Not Recovered/Not Resolved]

NARRATIVE: CASE EVENT DATE: 20150112
